FAERS Safety Report 7145339-4 (Version None)
Quarter: 2010Q4

REPORT INFORMATION
  Report Type: 
  Country: None (occurrence: None)
  Receive Date: 20101208
  Receipt Date: 20101129
  Transmission Date: 20110411
  Serious: Yes (Hospitalization, Other)
  Sender: FDA-Public Use
  Company Number: BR-NOVOPROD-319436

PATIENT
  Age: 60 Year
  Sex: Male
  Weight: 93 kg

DRUGS (4)
  1. LEVEMIR [Suspect]
     Indication: TYPE 2 DIABETES MELLITUS
     Dosage: 18 U, QD
     Route: 058
     Dates: start: 20100820
  2. LEVEMIR [Suspect]
     Dosage: 32 U, QD
     Route: 058
     Dates: start: 20101120
  3. GLUCOVANCE [Concomitant]
     Dosage: 15+1500
     Route: 048
  4. GALVUS [Concomitant]
     Dosage: 100 MG, QD
     Route: 048

REACTIONS (2)
  - OSTEOMYELITIS [None]
  - SKIN LESION [None]
